FAERS Safety Report 7555216-2 (Version None)
Quarter: 2011Q2

REPORT INFORMATION
  Report Type: 
  Country: None (occurrence: None)
  Receive Date: 20110617
  Receipt Date: 20110609
  Transmission Date: 20111010
  Serious: Yes (Other)
  Sender: FDA-Public Use
  Company Number: PHHY2010BR85562

PATIENT
  Sex: Male

DRUGS (2)
  1. DIOVAN [Suspect]
     Indication: HYPERTENSION
     Dosage: 0.5 DF, QD
  2. MICARDIS [Concomitant]
     Dosage: UNK UKN, UNK

REACTIONS (3)
  - NEUROCYSTICERCOSIS [None]
  - GAIT DISTURBANCE [None]
  - BLOOD PRESSURE INADEQUATELY CONTROLLED [None]
